FAERS Safety Report 8860207 (Version 2)
Quarter: 2013Q4

REPORT INFORMATION
  Report Type: Spontaneous
  Country: US (occurrence: US)
  Receive Date: 20121025
  Receipt Date: 20131210
  Transmission Date: 20140711
  Serious: Yes (Hospitalization, Other)
  Sender: FDA-Public Use
  Company Number: US-JNJFOC-20120808143

PATIENT
  Age: 17 Year
  Sex: Female
  Weight: 42.7 kg

DRUGS (13)
  1. DOXORUBICIN [Suspect]
     Indication: ACUTE MYELOID LEUKAEMIA
     Dosage: TOTAL DOSE: 216 MG
     Route: 042
     Dates: start: 20120714, end: 20120714
  2. DOXORUBICIN [Suspect]
     Indication: ACUTE MYELOID LEUKAEMIA
     Route: 042
     Dates: start: 20120712, end: 20120712
  3. DOXORUBICIN [Suspect]
     Indication: ACUTE MYELOID LEUKAEMIA
     Route: 042
     Dates: start: 20120710, end: 20120710
  4. DOXORUBICIN [Suspect]
     Indication: ACUTE MYELOID LEUKAEMIA
     Route: 042
     Dates: start: 20120609, end: 20120609
  5. CYTARABINE [Suspect]
     Indication: ACUTE MYELOID LEUKAEMIA
     Dosage: TOTAL DOSE ADMINISTERED WAS 2288MG
     Route: 037
     Dates: start: 20120609, end: 20120717
  6. VP-16 [Suspect]
     Indication: ACUTE MYELOID LEUKAEMIA
     Route: 042
  7. VP-16 [Suspect]
     Indication: ACUTE MYELOID LEUKAEMIA
     Dosage: TOTAL DOSE: 715MG
     Route: 042
     Dates: start: 20120609, end: 20120714
  8. VELCADE [Suspect]
     Indication: ACUTE MYELOID LEUKAEMIA
     Dosage: TOTAL DOSE 5.7MG
     Route: 040
     Dates: start: 20120717, end: 20120717
  9. VELCADE [Suspect]
     Indication: ACUTE MYELOID LEUKAEMIA
     Route: 040
     Dates: start: 20120713, end: 20120713
  10. VELCADE [Suspect]
     Indication: ACUTE MYELOID LEUKAEMIA
     Route: 040
     Dates: start: 20120710, end: 20120710
  11. DAUNORUBICIN HYDROCHLORIDE [Suspect]
     Indication: ACUTE MYELOID LEUKAEMIA
     Route: 042
     Dates: start: 20120709, end: 20120713
  12. DAUNORUBICIN HYDROCHLORIDE [Suspect]
     Indication: ACUTE MYELOID LEUKAEMIA
     Route: 042
     Dates: start: 20130814
  13. VORICONAZOLE [Concomitant]
     Route: 065

REACTIONS (12)
  - Febrile neutropenia [Unknown]
  - Gastritis [Recovered/Resolved]
  - Peripheral sensory neuropathy [Not Recovered/Not Resolved]
  - Mucosal inflammation [Unknown]
  - Cholecystitis [Recovered/Resolved]
  - Rash generalised [Unknown]
  - Pain of skin [Unknown]
  - Palmar erythema [Unknown]
  - Nausea [Unknown]
  - Local swelling [Unknown]
  - Skin exfoliation [Unknown]
  - Erythema [Unknown]
